FAERS Safety Report 5918370-1 (Version None)
Quarter: 2008Q4

REPORT INFORMATION
  Report Type: 
  Country: None (occurrence: None)
  Receive Date: 20081010
  Receipt Date: 20081002
  Transmission Date: 20090506
  Serious: Yes (Hospitalization)
  Sender: FDA-Public Use
  Company Number: 2008BI026301

PATIENT
  Age: 48 Year
  Sex: Female

DRUGS (2)
  1. AVONEX [Suspect]
     Indication: MULTIPLE SCLEROSIS
     Dosage: 30 MG; QW; IM
     Route: 030
     Dates: start: 20030621, end: 20030801
  2. AVONEX [Suspect]
     Indication: MULTIPLE SCLEROSIS
     Dosage: 30 MG; QW; IM
     Route: 030
     Dates: start: 20030801

REACTIONS (3)
  - AXILLARY PAIN [None]
  - CARDIAC DISORDER [None]
  - MULTIPLE SCLEROSIS RELAPSE [None]
